FAERS Safety Report 25922715 (Version 1)
Quarter: 2025Q4

REPORT INFORMATION
  Report Type: Spontaneous
  Country: US (occurrence: US)
  Receive Date: 20251015
  Receipt Date: 20251015
  Transmission Date: 20260117
  Serious: No
  Sender: ORPHALAN
  Company Number: US-ORPHALAN-US-ORP-25-00140

PATIENT
  Age: 41 Year
  Sex: Male

DRUGS (1)
  1. CUVRIOR [Suspect]
     Active Substance: TRIENTINE TETRAHYDROCHLORIDE
     Indication: Hepato-lenticular degeneration
     Dosage: 900 MILLIGRAM, BID
     Route: 048
     Dates: start: 20250123

REACTIONS (2)
  - Blood testosterone decreased [Not Recovered/Not Resolved]
  - Blood oestrogen increased [Not Recovered/Not Resolved]

NARRATIVE: CASE EVENT DATE: 20250301
